FAERS Safety Report 19287007 (Version 1)
Quarter: 2021Q2

REPORT INFORMATION
  Report Type: Spontaneous
  Country: GB (occurrence: GB)
  Receive Date: 20210521
  Receipt Date: 20210521
  Transmission Date: 20210717
  Serious: Yes (Death, Life-Threatening, Hospitalization, Other)
  Sender: FDA-Public Use
  Company Number: GB-MICRO LABS LIMITED-ML2021-00328

PATIENT
  Age: 75 Year
  Sex: Female

DRUGS (17)
  1. ATORVASTATIN [Suspect]
     Active Substance: ATORVASTATIN
     Indication: HYPERCHOLESTEROLAEMIA
     Dosage: UNK
     Dates: start: 1999
  2. AMOXICILLIN. [Suspect]
     Active Substance: AMOXICILLIN
  3. ASPIRINE [Suspect]
     Active Substance: ASPIRIN
     Indication: ANGINA PECTORIS
     Dosage: UNK
     Dates: start: 200203
  4. GLYCERYL TRINITRATE [Suspect]
     Active Substance: NITROGLYCERIN
     Indication: ANGINA PECTORIS
     Dosage: UNK;
     Route: 048
     Dates: start: 200203, end: 200203
  5. MIDAZOLAM. [Suspect]
     Active Substance: MIDAZOLAM
     Indication: MUSCLE SPASMS
     Dosage: UNK
     Dates: start: 200203, end: 200203
  6. PANCURONIUM BROMIDE. [Suspect]
     Active Substance: PANCURONIUM BROMIDE
     Indication: MUSCLE SPASMS
     Dosage: UNK
     Dates: start: 200203
  7. BUDESONIDE. [Suspect]
     Active Substance: BUDESONIDE
     Indication: ASTHMA
     Route: 055
  8. COCODAMOL [Suspect]
     Active Substance: ACETAMINOPHEN\CODEINE PHOSPHATE
     Indication: RHEUMATOID ARTHRITIS
     Dosage: UNK
  9. FENTANYL. [Suspect]
     Active Substance: FENTANYL
     Indication: ANAESTHESIA
     Route: 042
     Dates: start: 200203, end: 200203
  10. DILTIAZEM. [Concomitant]
     Active Substance: DILTIAZEM
     Indication: HYPERTENSION
     Dosage: UNK
  11. LANSOPRAZOLE. [Suspect]
     Active Substance: LANSOPRAZOLE
     Indication: DUODENAL ULCER
  12. DIPRIVAN [Concomitant]
     Active Substance: PROPOFOL
     Indication: ANAESTHESIA
     Dosage: UNK
     Route: 042
  13. QUININE SULFATE. [Suspect]
     Active Substance: QUININE SULFATE
     Indication: MUSCLE SPASMS
     Dosage: UNK
  14. CLARITHROMYCIN. [Suspect]
     Active Substance: CLARITHROMYCIN
  15. LISINOPRIL. [Suspect]
     Active Substance: LISINOPRIL
     Indication: HYPERTENSION
     Dosage: UNK
     Route: 048
     Dates: start: 200203
  16. ARAVA [Suspect]
     Active Substance: LEFLUNOMIDE
     Indication: RHEUMATOID ARTHRITIS
     Dosage: 20 MG;
     Dates: start: 200203, end: 200203
  17. PROPOFOL. [Concomitant]
     Active Substance: PROPOFOL
     Indication: ANAESTHESIA
     Dosage: UNK
     Route: 042

REACTIONS (15)
  - Hepatic ischaemia [Fatal]
  - Hypovolaemia [Fatal]
  - Post procedural haemorrhage [Fatal]
  - Gastrointestinal haemorrhage [Fatal]
  - Ulcer [Fatal]
  - Muscle relaxant therapy [Fatal]
  - Hepatic failure [Fatal]
  - Renal failure [Fatal]
  - Renal impairment [Fatal]
  - Coronary artery bypass [Fatal]
  - Hepatorenal syndrome [Fatal]
  - Coagulopathy [Fatal]
  - Hepatocellular injury [Fatal]
  - Haematemesis [Fatal]
  - Labile blood pressure [Fatal]
